FAERS Safety Report 23716942 (Version 1)
Quarter: 2024Q2

REPORT INFORMATION
  Report Type: Spontaneous
  Country: US (occurrence: US)
  Receive Date: 20240408
  Receipt Date: 20240408
  Transmission Date: 20240716
  Serious: Yes (Hospitalization, Other)
  Sender: FDA-Public Use
  Company Number: US-ASTELLAS-2024EU003091

PATIENT
  Age: 72 Year
  Sex: Female

DRUGS (3)
  1. PROGRAF [Interacting]
     Active Substance: TACROLIMUS
     Indication: Liver transplant
     Dosage: UNK UNK, UNKNOWN FREQ.
     Route: 065
  2. NIRMATRELVIR\RITONAVIR [Interacting]
     Active Substance: NIRMATRELVIR\RITONAVIR
     Indication: COVID-19 pneumonia
     Dosage: UNK UNK, UNKNOWN FREQ.
     Route: 065
  3. PHENYTOIN [Interacting]
     Active Substance: PHENYTOIN
     Indication: Toxicity to various agents
     Dosage: UNK UNK, UNKNOWN FREQ.
     Route: 065

REACTIONS (11)
  - Toxicity to various agents [Recovered/Resolved]
  - Acute kidney injury [Recovered/Resolved]
  - Hyperkalaemia [Recovered/Resolved]
  - Hypertensive urgency [Recovered/Resolved]
  - Hyponatraemia [Recovered/Resolved]
  - Abdominal pain [Recovered/Resolved]
  - Nausea [Recovered/Resolved]
  - COVID-19 pneumonia [Unknown]
  - Drug interaction [Unknown]
  - Drug interaction [Unknown]
  - Immunosuppressant drug level increased [Unknown]
